FAERS Safety Report 12961358 (Version 9)
Quarter: 2018Q2

REPORT INFORMATION
  Report Type: Spontaneous
  Country: US (occurrence: US)
  Receive Date: 20161121
  Receipt Date: 20180430
  Transmission Date: 20180711
  Serious: Yes (Other)
  Sender: FDA-Public Use
  Company Number: US-PFIZER INC-2016533752

PATIENT
  Age: 62 Year
  Sex: Female
  Weight: 54 kg

DRUGS (12)
  1. XELJANZ [Suspect]
     Active Substance: TOFACITINIB CITRATE
     Indication: RHEUMATOID ARTHRITIS
     Dosage: 5 MG, UNK
  2. MORPHINE [Concomitant]
     Active Substance: MORPHINE
     Indication: PAIN
     Dosage: 15 MG, AS NEEDED (1-3 TIMES A DAY AS NEEDED; USUALLY TAKES IT TWICE A DAY)
  3. XELJANZ [Suspect]
     Active Substance: TOFACITINIB CITRATE
     Dosage: 5 MG, 2X/DAY
     Route: 048
  4. CLONAZEPAM. [Concomitant]
     Active Substance: CLONAZEPAM
     Indication: TREMOR
     Dosage: 1 MG, 3X/DAY
  5. FOLIC ACID. [Concomitant]
     Active Substance: FOLIC ACID
     Dosage: 1 MG, DAILY
  6. METHOCARBAMOL. [Concomitant]
     Active Substance: METHOCARBAMOL
     Indication: MUSCLE RELAXANT THERAPY
     Dosage: 500 MG, AS NEEDED [500MG, UP TO 3 TIMES A DAY, AS NEEDED]
  7. TOPIRAMATE. [Concomitant]
     Active Substance: TOPIRAMATE
     Indication: MIGRAINE
     Dosage: UNK, 1X/DAY [25MG, 1-2 AT NIGHT]
  8. GABAPENTIN. [Concomitant]
     Active Substance: GABAPENTIN
     Indication: NEUROPATHY PERIPHERAL
     Dosage: 1600 MG, 1X/DAY (800 MG TABLET, 2 TABLETS ONCE DAILY)
  9. PREDNISONE. [Concomitant]
     Active Substance: PREDNISONE
     Indication: INFLAMMATION
     Dosage: 7.5 MG, DAILY (1.5 TABLETS BY MOUTH DAILY)
     Route: 048
  10. OXYCODONE [Concomitant]
     Active Substance: OXYCODONE
     Indication: PAIN
     Dosage: 325 MG, 2X/DAY (AS NEEDED)
  11. METHOTREXATE. [Concomitant]
     Active Substance: METHOTREXATE
     Indication: RHEUMATOID ARTHRITIS
     Dosage: 12 MG, WEEKLY [2MG TABLET, 6 TABLETS BY MOUTH 1 DAY A WEEK]
     Route: 048
  12. TEMAZEPAM. [Concomitant]
     Active Substance: TEMAZEPAM
     Indication: INSOMNIA
     Dosage: 30 MG, 1X/DAY (ONCE AT NIGHT)

REACTIONS (23)
  - Mobility decreased [Unknown]
  - Neuropathy peripheral [Unknown]
  - Loss of consciousness [Unknown]
  - Dysgraphia [Unknown]
  - Head injury [Unknown]
  - Fall [Unknown]
  - Drug ineffective [Unknown]
  - Malaise [Unknown]
  - Limb discomfort [Unknown]
  - Muscle spasms [Unknown]
  - Back pain [Unknown]
  - Nerve compression [Unknown]
  - Foot deformity [Unknown]
  - Wrist fracture [Unknown]
  - Haemorrhage [Unknown]
  - Osteopenia [Unknown]
  - Cerebrovascular accident [Unknown]
  - Balance disorder [Unknown]
  - Finger deformity [Unknown]
  - Somnolence [Unknown]
  - Pain [Unknown]
  - Arthropathy [Unknown]
  - Influenza [Recovering/Resolving]

NARRATIVE: CASE EVENT DATE: 201712
